FAERS Safety Report 13124079 (Version 2)
Quarter: 2017Q1

REPORT INFORMATION
  Report Type: Spontaneous
  Country: CZ (occurrence: CZ)
  Receive Date: 20170118
  Receipt Date: 20170126
  Transmission Date: 20170428
  Serious: Yes (Death)
  Sender: FDA-Public Use
  Company Number: US-ASTRAZENECA-2017SE04596

PATIENT
  Age: 5 Month
  Sex: Male
  Weight: 6 kg

DRUGS (5)
  1. SYNAGIS [Suspect]
     Active Substance: PALIVIZUMAB
     Indication: ANTIVIRAL PROPHYLAXIS
     Dosage: 2ND DOSE, 1 DF
     Route: 030
     Dates: start: 20161202, end: 20161202
  2. PYRIDOXIN LECIVA [Concomitant]
  3. VIGANTOL [Concomitant]
     Active Substance: CHOLECALCIFEROL
  4. FLIXOTIDE 50 INHALER [Concomitant]
  5. SYNAGIS [Suspect]
     Active Substance: PALIVIZUMAB
     Indication: ANTIVIRAL PROPHYLAXIS
     Dosage: 1ST DOSE, 1 DF
     Route: 030
     Dates: start: 20161104, end: 20161104

REACTIONS (2)
  - Sudden infant death syndrome [Fatal]
  - Drug abuse [Unknown]

NARRATIVE: CASE EVENT DATE: 20161203
